FAERS Safety Report 7293862-4 (Version None)
Quarter: 2011Q1

REPORT INFORMATION
  Report Type: 
  Country: None (occurrence: None)
  Receive Date: 20110202
  Receipt Date: 20110126
  Transmission Date: 20110831
  Serious: Yes (Disabling, Other)
  Sender: FDA-Public Use
  Company Number: 2011SP003775

PATIENT
  Age: 57 Year
  Sex: Male
  Weight: 72.5 kg

DRUGS (5)
  1. DOTHIEPIN HYDROCHLORIDE [Concomitant]
  2. DOTHIEPIN HYDROCHLORIDE [Concomitant]
  3. MIRTAZAPINE [Suspect]
     Indication: DEPRESSION
     Dates: start: 20110117
  4. WARFARIN SODIUM [Concomitant]
  5. BISOPROLOL FUMARATE [Concomitant]

REACTIONS (1)
  - ATRIAL FIBRILLATION [None]
